FAERS Safety Report 21116445 (Version 1)
Quarter: 2022Q3

REPORT INFORMATION
  Report Type: Spontaneous
  Country: CN (occurrence: CN)
  Receive Date: 20220722
  Receipt Date: 20220722
  Transmission Date: 20221026
  Serious: Yes (Other)
  Sender: FDA-Public Use
  Company Number: CN-SUN PHARMACEUTICAL INDUSTRIES LTD-2020R1-236213

PATIENT
  Age: 61 Year
  Sex: Female

DRUGS (2)
  1. ANASTROZOLE [Suspect]
     Active Substance: ANASTROZOLE
     Indication: Adjuvant therapy
     Dosage: 1 MILLIGRAM, DAILY
     Route: 065
     Dates: start: 201708
  2. ANASTROZOLE [Suspect]
     Active Substance: ANASTROZOLE
     Indication: Breast cancer

REACTIONS (1)
  - Pneumonia cryptococcal [Recovered/Resolved]
